FAERS Safety Report 4524365-5 (Version None)
Quarter: 2004Q4

REPORT INFORMATION
  Report Type: 
  Country: None (occurrence: None)
  Receive Date: 20041118
  Receipt Date: 20040930
  Transmission Date: 20050328
  Serious: Yes (Hospitalization)
  Sender: FDA-Public Use
  Company Number: FRVA20040002

PATIENT
  Age: 45 Year
  Sex: Female

DRUGS (2)
  1. FROVATRIPTAN MENARINI PHAR [Suspect]
     Indication: MIGRAINE
     Dosage: 10 MG DAILY PO
     Route: 048
  2. AMITRIPTYLINE HCL [Suspect]
     Dosage: DAILY PO
     Route: 048

REACTIONS (1)
  - MYOCARDIAL INFARCTION [None]
